FAERS Safety Report 11043610 (Version 2)
Quarter: 2015Q4

REPORT INFORMATION
  Report Type: Spontaneous
  Country: GB (occurrence: GB)
  Receive Date: 20150417
  Receipt Date: 20151107
  Transmission Date: 20160304
  Serious: Yes (Hospitalization)
  Sender: FDA-Public Use
  Company Number: GB-TEVA-554759ACC

PATIENT
  Age: 83 Year
  Sex: Female

DRUGS (15)
  1. TIOTROPIUM BROMIDE [Concomitant]
     Active Substance: TIOTROPIUM BROMIDE
     Dosage: 1 DOSAGE FORMS DAILY; 1 PUFF EVERY MORNING (OM). 2.5MICROGRAMS/DOSE SOLUTION
     Route: 050
  2. CARBOCISTEINE [Concomitant]
     Active Substance: CARBOCYSTEINE
     Dosage: 2250 MILLIGRAM DAILY;
     Route: 048
  3. COCODAMOL [Concomitant]
     Active Substance: ACETAMINOPHEN\CODEINE PHOSPHATE
     Dosage: 2 FOUR TIMES DAILY (QDS) AS NECESSARY (PRN), 30MG/500MG
     Route: 048
  4. SALBUTAMOL [Concomitant]
     Active Substance: ALBUTEROL
     Dosage: 2 PUFFS = 2DF.100MICROGRAMS/DOSE
     Route: 050
  5. FUROSEMIDE. [Suspect]
     Active Substance: FUROSEMIDE
     Indication: CARDIAC FAILURE CONGESTIVE
     Dosage: 40 MILLIGRAM DAILY; 40MG ONCE A DAY
  6. ASPIRIN. [Concomitant]
     Active Substance: ASPIRIN
     Dosage: 75 MILLIGRAM DAILY;
     Route: 048
  7. FERROUS SULFATE [Concomitant]
     Active Substance: FERROUS SULFATE\FERROUS SULFATE, DRIED
     Dosage: 600 MILLIGRAM DAILY;
     Route: 048
  8. LANSOPRAZOLE. [Concomitant]
     Active Substance: LANSOPRAZOLE
     Dosage: 30 MILLIGRAM DAILY; EVERY MORNING, GASTRO-RESISTANT CAPSULE
  9. METFORMIN [Concomitant]
     Active Substance: METFORMIN HYDROCHLORIDE
     Dosage: 2000 MILLIGRAM DAILY;
     Route: 048
     Dates: end: 20150328
  10. SIMVASTATIN. [Concomitant]
     Active Substance: SIMVASTATIN
     Dosage: 40 MILLIGRAM DAILY; EVERY NIGHT (ON)
     Route: 048
     Dates: end: 20150330
  11. NICOTINE. [Concomitant]
     Active Substance: NICOTINE
     Dosage: 1 DOSAGE FORMS DAILY; 25MG/16HOURS
     Route: 062
  12. PREDNISOLONE. [Concomitant]
     Active Substance: PREDNISOLONE
     Dosage: REDUCING REGIMEN
     Route: 048
  13. SERETIDE [Concomitant]
     Active Substance: FLUTICASONE FUROATE\SALMETEROL XINAFOATE
     Dosage: 4 DOSAGE FORMS DAILY; 2 PUFFS= 2DF
     Route: 050
  14. FUROSEMIDE. [Suspect]
     Active Substance: FUROSEMIDE
     Indication: PLEURAL EFFUSION
     Dosage: 240 MILLIGRAM DAILY; 80MG EVERY MORNING (OM) AND 40MG AT 2PM
     Route: 048
     Dates: start: 20150320, end: 20150330
  15. ROPINIROLE. [Concomitant]
     Active Substance: ROPINIROLE
     Dosage: 1MG TWICE DAILY (BD), 2MG EVERY NIGHT (ON)
     Route: 048

REACTIONS (3)
  - Dyspnoea [Unknown]
  - Acute kidney injury [Recovering/Resolving]
  - Chest pain [Unknown]

NARRATIVE: CASE EVENT DATE: 20150327
